FAERS Safety Report 7371790-3 (Version None)
Quarter: 2011Q1

REPORT INFORMATION
  Report Type: 
  Country: None (occurrence: None)
  Receive Date: 20110324
  Receipt Date: 20110310
  Transmission Date: 20110831
  Serious: Yes (Hospitalization)
  Sender: FDA-Public Use
  Company Number: PHHY2010US85155

PATIENT
  Sex: Female

DRUGS (1)
  1. FEMARA [Suspect]
     Dosage: 2.5 MG, QD
     Route: 048
     Dates: start: 20100924

REACTIONS (6)
  - BREAST INFECTION [None]
  - NAUSEA [None]
  - ABDOMINAL DISCOMFORT [None]
  - BONE PAIN [None]
  - SEROMA [None]
  - BREAST INFLAMMATION [None]
